FAERS Safety Report 19698950 (Version 2)
Quarter: 2022Q2

REPORT INFORMATION
  Report Type: Spontaneous
  Country: US (occurrence: US)
  Receive Date: 20210813
  Receipt Date: 20220428
  Transmission Date: 20220720
  Serious: No
  Sender: FDA-Public Use
  Company Number: US-PFIZER INC-2021894348

PATIENT
  Age: 82 Year
  Sex: Female

DRUGS (4)
  1. LATANOPROST [Suspect]
     Active Substance: LATANOPROST
     Indication: Glaucoma
     Dosage: 2 DF, 1X/DAY (I DROP EACH EYE EVERY NIGHT)
     Route: 047
     Dates: start: 20210225
  2. LATANOPROST [Suspect]
     Active Substance: LATANOPROST
     Dosage: 2 DF, 1X/DAY (I DROP EACH EYE EVERY NIGHT)
     Route: 047
  3. LATANOPROST [Suspect]
     Active Substance: LATANOPROST
     Dosage: 2 DF, 1X/DAY (I DROP EACH EYE EVERY NIGHT)
     Route: 047
  4. LATANOPROST [Suspect]
     Active Substance: LATANOPROST
     Dosage: 2 DF, 1X/DAY (I DROP EACH EYE EVERY NIGHT)
     Route: 047

REACTIONS (2)
  - Eye irritation [Unknown]
  - Pain [Unknown]

NARRATIVE: CASE EVENT DATE: 20210601
